FAERS Safety Report 20725611 (Version 1)
Quarter: 2022Q2

REPORT INFORMATION
  Report Type: Spontaneous
  Country: CA (occurrence: CA)
  Receive Date: 20220419
  Receipt Date: 20220419
  Transmission Date: 20220721
  Serious: Yes (Death, Other)
  Sender: FDA-Public Use
  Company Number: CA-VALIDUS PHARMACEUTICALS LLC-CA-VDP-2022-015386

PATIENT

DRUGS (2)
  1. LASIX [Suspect]
     Active Substance: FUROSEMIDE
     Indication: Maternal exposure timing unspecified
     Dosage: UNK
     Route: 064
  2. VALSARTAN [Suspect]
     Active Substance: VALSARTAN
     Indication: Maternal exposure timing unspecified
     Dosage: UNK
     Route: 064

REACTIONS (3)
  - Renal tubular dysfunction [Fatal]
  - Angiotensin converting enzyme inhibitor foetopathy [Fatal]
  - Hypocalvaria [Fatal]
